FAERS Safety Report 5216464-X (Version None)
Quarter: 2006Q4

REPORT INFORMATION
  Report Type: 
  Country: None (occurrence: None)
  Receive Date: 20061129
  Receipt Date: 20030520
  Transmission Date: 20070319
  Serious: Yes (Hospitalization)
  Sender: FDA-Public Use
  Company Number: 2003UW01566

PATIENT
  Sex: Female

DRUGS (2)
  1. FASLODEX [Suspect]
     Indication: BREAST CANCER
     Dosage: 250 MG DAILY
     Route: 030
     Dates: start: 20021205
  2. PREDNISONE [Concomitant]

REACTIONS (5)
  - FATIGUE [None]
  - NAUSEA [None]
  - PULMONARY THROMBOSIS [None]
  - PYREXIA [None]
  - THROMBOSIS [None]
